FAERS Safety Report 16372404 (Version 1)
Quarter: 2019Q2

REPORT INFORMATION
  Report Type: Spontaneous
  Country: GB (occurrence: GB)
  Receive Date: 20190530
  Receipt Date: 20190530
  Transmission Date: 20190711
  Serious: Yes (Other)
  Sender: FDA-Public Use
  Company Number: GB-JNJFOC-20190539953

PATIENT
  Age: 54 Year
  Sex: Female
  Weight: 84 kg

DRUGS (11)
  1. SACUBITRIL [Concomitant]
     Active Substance: SACUBITRIL
     Indication: CARDIAC FAILURE
     Route: 065
     Dates: start: 20190411
  2. RANITIDINE. [Concomitant]
     Active Substance: RANITIDINE
     Route: 065
     Dates: start: 20181011
  3. FOLIC ACID. [Concomitant]
     Active Substance: FOLIC ACID
     Route: 065
     Dates: start: 20181011
  4. CLOPIDOGREL [Concomitant]
     Active Substance: CLOPIDOGREL BISULFATE
     Route: 065
     Dates: start: 20181011
  5. ATORVASTATIN [Concomitant]
     Active Substance: ATORVASTATIN
     Route: 065
     Dates: start: 20181011
  6. ISOSORBIDE MONONITRATE. [Concomitant]
     Active Substance: ISOSORBIDE MONONITRATE
     Route: 065
     Dates: start: 20181011
  7. GLYCERYL TRINITRATE [Concomitant]
     Active Substance: NITROGLYCERIN
     Indication: ANGINA PECTORIS
     Route: 065
  8. XARELTO [Suspect]
     Active Substance: RIVAROXABAN
     Indication: ANTICOAGULANT THERAPY
     Route: 048
     Dates: start: 20190103, end: 20190424
  9. BISOPROLOL [Concomitant]
     Active Substance: BISOPROLOL
     Route: 065
     Dates: start: 20190115
  10. CHLORPHENAMINE [Concomitant]
     Active Substance: CHLORPHENIRAMINE MALEATE
     Route: 065
     Dates: start: 20190301, end: 20190308
  11. IVABRADINE [Concomitant]
     Active Substance: IVABRADINE
     Indication: ANGINA PECTORIS
     Route: 065
     Dates: start: 20181011

REACTIONS (2)
  - Pruritus [Recovering/Resolving]
  - Skin abrasion [Unknown]

NARRATIVE: CASE EVENT DATE: 20190424
